FAERS Safety Report 11562975 (Version 1)
Quarter: 2015Q3

REPORT INFORMATION
  Report Type: Spontaneous
  Country: IN (occurrence: IN)
  Receive Date: 20150928
  Receipt Date: 20150928
  Transmission Date: 20151125
  Serious: Yes (Hospitalization)
  Sender: FDA-Public Use
  Company Number: IN-AKORN PHARMACEUTICALS-2015AKN00530

PATIENT
  Age: 12 Year
  Sex: Female

DRUGS (5)
  1. HYDROCORTISONE. [Suspect]
     Active Substance: HYDROCORTISONE
     Dosage: 12 MG/M2, 1X/DAY
  2. HYDROCORTISONE. [Suspect]
     Active Substance: HYDROCORTISONE
     Indication: ADRENAL INSUFFICIENCY
     Dosage: 10 MG/M2, 1X/DAY
  3. RIFAMPIN. [Suspect]
     Active Substance: RIFAMPIN
     Indication: TUBERCULOSIS
  4. HYDROCORTISONE. [Suspect]
     Active Substance: HYDROCORTISONE
     Dosage: 30 MG/M2, 1X/DAY
  5. FLUODROCORTISONE [Concomitant]
     Indication: ADRENAL INSUFFICIENCY
     Dosage: 0.1 MG, 1X/DAY

REACTIONS (2)
  - Adrenocortical insufficiency acute [Recovered/Resolved]
  - Drug interaction [Recovered/Resolved]
